FAERS Safety Report 8128808-X (Version None)
Quarter: 2012Q1

REPORT INFORMATION
  Report Type: 
  Country: None (occurrence: None)
  Receive Date: 20120210
  Receipt Date: 20110307
  Transmission Date: 20120608
  Serious: No
  Sender: FDA-Public Use
  Company Number: US-BRISTOL-MYERS SQUIBB COMPANY-15591621

PATIENT
  Age: 21 Year
  Sex: Female

DRUGS (1)
  1. ORENCIA [Suspect]
     Dosage: DURATION OF THERAPY:14 OR 15 MONTHS

REACTIONS (1)
  - RASH [None]
